FAERS Safety Report 12672455 (Version 1)
Quarter: 2016Q3

REPORT INFORMATION
  Report Type: Spontaneous
  Country: US (occurrence: US)
  Receive Date: 20160822
  Receipt Date: 20160822
  Transmission Date: 20161109
  Serious: No
  Sender: FDA-Public Use
  Company Number: US-JNJFOC-20160706295

PATIENT
  Sex: Female
  Weight: 74.84 kg

DRUGS (3)
  1. WOMENS ROGAINE UNSCENTED [Suspect]
     Active Substance: MINOXIDIL
     Route: 061
  2. WOMENS ROGAINE UNSCENTED [Suspect]
     Active Substance: MINOXIDIL
     Indication: ALOPECIA
     Dosage: FULL CUP
     Route: 061
  3. LEVOTHYROXINE. [Concomitant]
     Active Substance: LEVOTHYROXINE
     Indication: HYPOTHYROIDISM
     Dosage: 9 MONTHS
     Route: 065
     Dates: start: 201511

REACTIONS (6)
  - Off label use [Recovered/Resolved]
  - Expired product administered [Recovered/Resolved]
  - Headache [Recovered/Resolved]
  - Skin irritation [Recovered/Resolved]
  - Product use issue [Recovered/Resolved]
  - Alopecia [Recovered/Resolved]
